FAERS Safety Report 18912343 (Version 1)
Quarter: 2021Q1

REPORT INFORMATION
  Report Type: Spontaneous
  Country: US (occurrence: US)
  Receive Date: 20210219
  Receipt Date: 20210219
  Transmission Date: 20210420
  Serious: Yes (Hospitalization, Other)
  Sender: FDA-Public Use
  Company Number: US-AUROBINDO-AUR-APL-2021-006543

PATIENT
  Age: 34 Year
  Sex: Male

DRUGS (2)
  1. CLORAZEPATE [Suspect]
     Active Substance: CLORAZEPATE DIPOTASSIUM
     Indication: SEIZURE
     Dosage: 7.5 MILLIGRAM, TWO TIMES A DAY
     Route: 065
  2. CLORAZEPATE [Suspect]
     Active Substance: CLORAZEPATE DIPOTASSIUM
     Dosage: 1.875 MILLIGRAM, EVERY OTHER DAY
     Route: 065

REACTIONS (5)
  - Depression suicidal [Recovered/Resolved]
  - Anxiety [Recovered/Resolved]
  - Depression [Recovered/Resolved]
  - Akathisia [Recovered/Resolved]
  - Irritability [Recovered/Resolved]
